FAERS Safety Report 16772422 (Version 1)
Quarter: 2019Q3

REPORT INFORMATION
  Report Type: Spontaneous
  Country: US (occurrence: US)
  Receive Date: 20190904
  Receipt Date: 20190904
  Transmission Date: 20191005
  Serious: No
  Sender: FDA-Public Use
  Company Number: US-PTC THERAPEUTICS, INC.-US-2019PTC000926

PATIENT
  Age: 12 Year
  Sex: Male

DRUGS (1)
  1. EMFLAZA [Suspect]
     Active Substance: DEFLAZACORT
     Indication: MUSCULAR DYSTROPHY
     Dosage: 42 MG, QD
     Route: 048
     Dates: start: 20171114

REACTIONS (2)
  - Fall [Recovered/Resolved]
  - Concussion [Unknown]

NARRATIVE: CASE EVENT DATE: 20190517
